FAERS Safety Report 10574211 (Version 1)
Quarter: 2014Q4

REPORT INFORMATION
  Report Type: Spontaneous
  Country: US (occurrence: US)
  Receive Date: 20141110
  Receipt Date: 20141110
  Transmission Date: 20150529
  Serious: No
  Sender: FDA-Public Use
  Company Number: US-GALDERMA-US14002611

PATIENT
  Age: 53 Year
  Sex: Female

DRUGS (8)
  1. SIMETHICONE [Concomitant]
     Active Substance: DIMETHICONE\SILICON DIOXIDE\SIMETHICONE
     Indication: ABDOMINAL DISTENSION
     Dosage: 80 MG
     Route: 048
  2. VAGIFEM (ESTRADIOL VAGINAL) [Concomitant]
     Indication: HORMONE REPLACEMENT THERAPY
     Route: 067
  3. CHONDROITIN [Concomitant]
     Active Substance: CHONDROITIN
  4. DOCUSATE [Concomitant]
     Active Substance: DOCUSATE
     Indication: FAECES HARD
     Dosage: 200 MG
     Route: 048
  5. GLUCOSAMINE [Concomitant]
     Active Substance: GLUCOSAMINE
     Indication: SUPPLEMENTATION THERAPY
     Route: 048
  6. CALCIUM WITH BONE DENSITY [Concomitant]
     Indication: SUPPLEMENTATION THERAPY
     Route: 048
  7. MSM VITAMIN [Concomitant]
     Indication: SUPPLEMENTATION THERAPY
     Route: 048
  8. CLOBEX [Suspect]
     Active Substance: CLOBETASOL PROPIONATE
     Indication: SKIN REACTION
     Dosage: 0.05%
     Route: 061
     Dates: start: 20140708

REACTIONS (3)
  - Erythema [Not Recovered/Not Resolved]
  - Skin hyperpigmentation [Not Recovered/Not Resolved]
  - Intentional product use issue [Not Recovered/Not Resolved]

NARRATIVE: CASE EVENT DATE: 201407
